FAERS Safety Report 4426587-0 (Version None)
Quarter: 2004Q3

REPORT INFORMATION
  Report Type: 
  Country: None (occurrence: None)
  Receive Date: 20040816
  Receipt Date: 20040804
  Transmission Date: 20050211
  Serious: Yes (Hospitalization)
  Sender: FDA-Public Use
  Company Number: US-AMGEN-US086010

PATIENT
  Sex: Female

DRUGS (6)
  1. NEUPOGEN [Suspect]
     Indication: CHEMOTHERAPY
  2. NEULASTA [Suspect]
     Indication: CHEMOTHERAPY
  3. DOXORUBICIN HCL [Concomitant]
  4. CYCLOPHOSPHAMIDE [Concomitant]
  5. TAXOL [Concomitant]
  6. TAXOTERE [Concomitant]

REACTIONS (5)
  - BONE PAIN [None]
  - DEHYDRATION [None]
  - DIVERTICULITIS [None]
  - NEUROPATHY [None]
  - WHITE BLOOD CELL COUNT INCREASED [None]
